FAERS Safety Report 23269678 (Version 2)
Quarter: 2023Q4

REPORT INFORMATION
  Report Type: Spontaneous
  Country: BR (occurrence: BR)
  Receive Date: 20231207
  Receipt Date: 20231214
  Transmission Date: 20240110
  Serious: Yes (Other)
  Sender: FDA-Public Use
  Company Number: BR-SANDOZ-SDZ2023BR063958

PATIENT
  Sex: Female

DRUGS (1)
  1. ZOLPIDEM TARTRATE [Suspect]
     Active Substance: ZOLPIDEM TARTRATE
     Indication: Product used for unknown indication
     Dosage: 10 MG 30FCT
     Route: 065

REACTIONS (6)
  - Drug dependence [Unknown]
  - Arrhythmia [Unknown]
  - Tremor [Unknown]
  - Insomnia [Unknown]
  - Withdrawal syndrome [Unknown]
  - Product dose omission issue [Unknown]
